FAERS Safety Report 5531624-6 (Version None)
Quarter: 2007Q4

REPORT INFORMATION
  Report Type: 
  Country: None (occurrence: None)
  Receive Date: 20071128
  Receipt Date: 20071112
  Transmission Date: 20080405
  Serious: Yes (Hospitalization)
  Sender: FDA-Public Use
  Company Number: S07-GER-06065-01

PATIENT
  Age: 80 Year
  Sex: Female

DRUGS (8)
  1. CITALOPRAM HYDROBROMIDE [Suspect]
     Indication: DEPRESSION
     Dosage: 10 MG QD PO
     Route: 048
     Dates: start: 20060413, end: 20060624
  2. ENALAPRIL [Suspect]
     Indication: HYPERTENSION
     Dates: start: 20060627
  3. LORAZEPAM [Suspect]
     Dosage: 15 MG QD
     Dates: start: 20060101
  4. PANTOZOL (PANTOPRAZOLE SODIUM) [Concomitant]
  5. IDEOS (CALCIUM CARBONATE) [Concomitant]
  6. VOMACUR (DIMENHYDRINATE) [Concomitant]
  7. L-THYROXIN (LEVOTHYROXINE) [Concomitant]
  8. CONCOR (BISOPROLOL FUMARATE) [Concomitant]

REACTIONS (3)
  - GENERAL PHYSICAL HEALTH DETERIORATION [None]
  - HYPERTENSIVE CRISIS [None]
  - HYPONATRAEMIA [None]
